FAERS Safety Report 8315665-1 (Version None)
Quarter: 2012Q2

REPORT INFORMATION
  Report Type: 
  Country: None (occurrence: None)
  Receive Date: 20120426
  Receipt Date: 20120419
  Transmission Date: 20120825
  Serious: Yes (Other)
  Sender: FDA-Public Use
  Company Number: US-ABBOTT-12P-163-0918177-00

PATIENT
  Sex: Female
  Weight: 78.542 kg

DRUGS (1)
  1. LUPRON DEPOT [Suspect]
     Indication: ENDOMETRIOSIS
     Dates: start: 20120106

REACTIONS (3)
  - DEEP VEIN THROMBOSIS [None]
  - DYSPLASIA [None]
  - CARTILAGE INJURY [None]
